FAERS Safety Report 6372493-4 (Version None)
Quarter: 2009Q3

REPORT INFORMATION
  Report Type: 
  Country: None (occurrence: None)
  Receive Date: 20090924
  Receipt Date: 20081217
  Transmission Date: 20100115
  Serious: Yes (Other)
  Sender: FDA-Public Use
  Company Number: US-ASTRAZENECA-2008UW16053

PATIENT
  Age: 41 Year
  Sex: Male
  Weight: 99.8 kg

DRUGS (5)
  1. SEROQUEL [Suspect]
     Indication: HALLUCINATION, AUDITORY
     Dosage: 600 MG-900 MG
     Route: 048
     Dates: start: 20040401, end: 20080801
  2. SEROQUEL [Suspect]
     Indication: DEPRESSION
     Dosage: 600 MG-900 MG
     Route: 048
     Dates: start: 20040401, end: 20080801
  3. RISPERDAL [Concomitant]
     Dates: start: 20020101
  4. ZYPREXA [Concomitant]
     Dates: start: 20030101, end: 20040101
  5. TRAZODONE HCL [Concomitant]
     Dates: start: 20030101, end: 20050101

REACTIONS (8)
  - BACK PAIN [None]
  - BLOOD CHOLESTEROL INCREASED [None]
  - BLOOD TRIGLYCERIDES INCREASED [None]
  - FALL [None]
  - OBESITY [None]
  - PANCREATITIS [None]
  - TYPE 1 DIABETES MELLITUS [None]
  - WEIGHT INCREASED [None]
